FAERS Safety Report 9249612 (Version 1)
Quarter: 2013Q2

REPORT INFORMATION
  Report Type: Spontaneous
  Country: US (occurrence: US)
  Receive Date: 20130423
  Receipt Date: 20130423
  Transmission Date: 20140414
  Serious: No
  Sender: FDA-Public Use
  Company Number: US-BRISTOL-MYERS SQUIBB COMPANY-17375148

PATIENT
  Age: 65 Year
  Sex: Female

DRUGS (1)
  1. YERVOY [Suspect]

REACTIONS (2)
  - Arthritis [Unknown]
  - Weight decreased [Recovering/Resolving]
